FAERS Safety Report 5387473-5 (Version None)
Quarter: 2007Q3

REPORT INFORMATION
  Report Type: 
  Country: None (occurrence: None)
  Receive Date: 20070711
  Receipt Date: 20070711
  Transmission Date: 20080115
  Serious: Yes (Hospitalization)
  Sender: FDA-Public Use
  Company Number: None

PATIENT
  Age: 63 Year
  Sex: Male
  Weight: 53.2 kg

DRUGS (1)
  1. RITUXIMAB [Suspect]
     Indication: CHRONIC LYMPHOCYTIC LEUKAEMIA
     Dosage: 600MG, 600MGX1, INTRAVEN
     Route: 042
     Dates: start: 20070628, end: 20070628

REACTIONS (2)
  - HEART RATE IRREGULAR [None]
  - HYPOTENSION [None]
